FAERS Safety Report 24784115 (Version 1)
Quarter: 2024Q4

REPORT INFORMATION
  Report Type: Spontaneous
  Country: US (occurrence: US)
  Receive Date: 20241227
  Receipt Date: 20241227
  Transmission Date: 20250115
  Serious: Yes (Death, Hospitalization, Other)
  Sender: RIGEL PHARMACEUTICALS
  Company Number: US-BLUEPRINT MEDICINES CORPORATION-2024BUS004789

PATIENT
  Age: 51 Year

DRUGS (2)
  1. GAVRETO [Suspect]
     Active Substance: PRALSETINIB
     Indication: Familial medullary thyroid cancer
     Dosage: 100 MILLIGRAM, BID
     Route: 065
  2. GAVRETO [Suspect]
     Active Substance: PRALSETINIB
     Dosage: 100 MILLIGRAM, QD
     Route: 065

REACTIONS (3)
  - Cardiac arrest [Fatal]
  - Tumour lysis syndrome [Unknown]
  - Disease progression [Unknown]
